FAERS Safety Report 8290530-7 (Version None)
Quarter: 2012Q2

REPORT INFORMATION
  Report Type: 
  Country: None (occurrence: None)
  Receive Date: 20120417
  Receipt Date: 20111111
  Transmission Date: 20120825
  Serious: No
  Sender: FDA-Public Use
  Company Number: US-ASTRAZENECA-2010SE11334

PATIENT
  Age: 63 Year
  Sex: Female
  Weight: 64 kg

DRUGS (3)
  1. NEXIUM [Suspect]
     Indication: GASTROOESOPHAGEAL REFLUX DISEASE
     Route: 048
     Dates: start: 19990101
  2. NEXIUM [Suspect]
     Indication: EROSIVE OESOPHAGITIS
     Route: 048
     Dates: start: 19990101
  3. VITAMIN TAB [Concomitant]

REACTIONS (7)
  - BACK PAIN [None]
  - OSTEOPOROSIS [None]
  - ARTHRALGIA [None]
  - CARPAL TUNNEL SYNDROME [None]
  - HEADACHE [None]
  - NODULE [None]
  - INCORRECT DOSE ADMINISTERED [None]
